FAERS Safety Report 11504625 (Version 1)
Quarter: 2015Q3

REPORT INFORMATION
  Report Type: Spontaneous
  Country: US (occurrence: US)
  Receive Date: 20150915
  Receipt Date: 20150915
  Transmission Date: 20151125
  Serious: No
  Sender: FDA-Public Use
  Company Number: US-ROCHE-757094

PATIENT
  Age: 59 Year
  Sex: Male
  Weight: 95.3 kg

DRUGS (3)
  1. ALCOHOL. [Suspect]
     Active Substance: ALCOHOL
     Indication: PRODUCT USED FOR UNKNOWN INDICATION
     Route: 065
  2. PEGASYS [Suspect]
     Active Substance: PEGINTERFERON ALFA-2A
     Indication: HEPATITIS C
     Route: 058
     Dates: start: 200906, end: 20101209
  3. COPEGUS [Suspect]
     Active Substance: RIBAVIRIN
     Indication: HEPATITIS C
     Route: 048
     Dates: start: 200906, end: 20101209

REACTIONS (17)
  - Nausea [Unknown]
  - Red blood cell count decreased [Unknown]
  - Injection site scar [Not Recovered/Not Resolved]
  - Injection site ulcer [Not Recovered/Not Resolved]
  - Weight decreased [Unknown]
  - Scar [Unknown]
  - Immune system disorder [Unknown]
  - Anaemia [Unknown]
  - Skin lesion [Unknown]
  - Bacillus infection [Unknown]
  - Product quality issue [Unknown]
  - Skin disorder [Unknown]
  - Rash [Not Recovered/Not Resolved]
  - Influenza like illness [Unknown]
  - Injection site discolouration [Not Recovered/Not Resolved]
  - Depression [Unknown]
  - Decreased appetite [Unknown]

NARRATIVE: CASE EVENT DATE: 201007
